FAERS Safety Report 7135754-7 (Version None)
Quarter: 2010Q4

REPORT INFORMATION
  Report Type: 
  Country: None (occurrence: None)
  Receive Date: 20101203
  Receipt Date: 20101124
  Transmission Date: 20110411
  Serious: Yes (Other)
  Sender: FDA-Public Use
  Company Number: FR-ELI_LILLY_AND_COMPANY-FR201011006888

PATIENT
  Sex: Male
  Weight: 80 kg

DRUGS (6)
  1. EFFIENT [Suspect]
     Indication: ACUTE CORONARY SYNDROME
     Dosage: UNK, UNKNOWN
     Route: 048
     Dates: start: 20101116
  2. TAHOR [Concomitant]
     Dosage: UNK, UNKNOWN
     Route: 065
  3. AMIODARONE [Concomitant]
     Dosage: UNK, UNKNOWN
     Route: 065
     Dates: start: 20101116
  4. COVERSYL [Concomitant]
     Dosage: UNK, UNKNOWN
     Route: 065
  5. CARDENSIEL [Concomitant]
     Dosage: UNK, UNKNOWN
     Route: 065
  6. KARDEGIC [Concomitant]
     Dosage: UNK, UNKNOWN
     Route: 065

REACTIONS (1)
  - DERMATITIS EXFOLIATIVE [None]
